APPROVED DRUG PRODUCT: EMTRICITABINE, RILPIVIRINE AND TENOFOVIR DISOPROXIL FUMARATE
Active Ingredient: EMTRICITABINE; RILPIVIRINE HYDROCHLORIDE; TENOFOVIR DISOPROXIL FUMARATE
Strength: 200MG;EQ 25MG BASE;300MG
Dosage Form/Route: TABLET;ORAL
Application: A208452 | Product #001 | TE Code: AB
Applicant: MYLAN PHARMACEUTICALS INC
Approved: May 20, 2025 | RLD: No | RS: No | Type: RX